FAERS Safety Report 9249664 (Version 2)
Quarter: 2013Q2

REPORT INFORMATION
  Report Type: Spontaneous
  Country: FR (occurrence: FR)
  Receive Date: 20130423
  Receipt Date: 20130509
  Transmission Date: 20140414
  Serious: Yes (Other)
  Sender: FDA-Public Use
  Company Number: FR-BAXTER-2013BAX014729

PATIENT
  Age: 62 Year
  Sex: Male

DRUGS (2)
  1. ADVATE 3000 UI POUDRE ET SOLVANT POUR SOLUTION INJECTABLE [Suspect]
     Indication: CORONARY ARTERY BYPASS
     Route: 065
  2. ADVATE 3000 UI POUDRE ET SOLVANT POUR SOLUTION INJECTABLE [Suspect]
     Indication: HAEMOPHILIA

REACTIONS (1)
  - Angina pectoris [Unknown]
